FAERS Safety Report 12248557 (Version 6)
Quarter: 2016Q3

REPORT INFORMATION
  Report Type: Spontaneous
  Country: GB (occurrence: GB)
  Receive Date: 20160408
  Receipt Date: 20160713
  Transmission Date: 20161109
  Serious: Yes (Hospitalization, Other)
  Sender: FDA-Public Use
  Company Number: GB-AMGEN-GBRSP2016041326

PATIENT
  Age: 66 Year
  Sex: Male

DRUGS (9)
  1. AVASTIN [Suspect]
     Active Substance: BEVACIZUMAB
     Indication: PRODUCT USED FOR UNKNOWN INDICATION
     Dosage: 675 MG, UNK
     Route: 042
     Dates: start: 20160321
  2. CISPLATIN. [Suspect]
     Active Substance: CISPLATIN
     Indication: PRODUCT USED FOR UNKNOWN INDICATION
     Dosage: 156 MG, UNK
     Route: 042
     Dates: start: 20160321
  3. PEMETREXED [Suspect]
     Active Substance: PEMETREXED
     Indication: PRODUCT USED FOR UNKNOWN INDICATION
     Dosage: 1050 MG, UNK
     Route: 065
     Dates: start: 20160321
  4. NEULASTA [Suspect]
     Active Substance: PEGFILGRASTIM
     Indication: PRODUCT USED FOR UNKNOWN INDICATION
     Dosage: 6 MG, UNK
     Route: 058
     Dates: start: 20160322
  5. CISPLATIN. [Suspect]
     Active Substance: CISPLATIN
     Dosage: 156 MG, UNK
     Route: 042
  6. DENOSUMAB [Suspect]
     Active Substance: DENOSUMAB
     Dosage: 120 MG, UNK
     Route: 065
  7. AVASTIN [Suspect]
     Active Substance: BEVACIZUMAB
     Dosage: 675 MG, UNK
     Route: 042
  8. APREPITANT. [Suspect]
     Active Substance: APREPITANT
     Indication: PRODUCT USED FOR UNKNOWN INDICATION
     Dosage: UNK
     Route: 065
  9. PEMETREXED [Suspect]
     Active Substance: PEMETREXED
     Dosage: 1050 MG, UNK
     Route: 065

REACTIONS (23)
  - Hypersomnia [Unknown]
  - Syncope [Unknown]
  - Dysgeusia [Unknown]
  - Contusion [Unknown]
  - Neuropathy peripheral [Unknown]
  - Fatigue [Unknown]
  - Fall [Unknown]
  - Ocular hyperaemia [Unknown]
  - Rhinorrhoea [Unknown]
  - Joint swelling [Unknown]
  - Headache [Unknown]
  - Dizziness [Unknown]
  - Decreased appetite [Unknown]
  - Malaise [Unknown]
  - Alopecia [Unknown]
  - Paraesthesia [Not Recovered/Not Resolved]
  - Dyspnoea [Unknown]
  - Melaena [Unknown]
  - Epistaxis [Unknown]
  - Dehydration [Unknown]
  - Somnolence [Unknown]
  - Flushing [Unknown]
  - Cough [Unknown]

NARRATIVE: CASE EVENT DATE: 20160321
